FAERS Safety Report 13446214 (Version 1)
Quarter: 2017Q2

REPORT INFORMATION
  Report Type: Spontaneous
  Country: US (occurrence: US)
  Receive Date: 20170417
  Receipt Date: 20170417
  Transmission Date: 20170830
  Serious: Yes (Other)
  Sender: FDA-Public Use
  Company Number: US-ROCHE-1918034

PATIENT
  Age: 73 Year
  Sex: Female

DRUGS (1)
  1. TRASTUZUMAB EMTANSINE [Suspect]
     Active Substance: ADO-TRASTUZUMAB EMTANSINE
     Indication: HER-2 POSITIVE BREAST CANCER
     Route: 065
     Dates: start: 201304

REACTIONS (7)
  - Nodular regenerative hyperplasia [Unknown]
  - Thrombocytopenia [Recovering/Resolving]
  - Metaplasia [Unknown]
  - Abdominal injury [Unknown]
  - Transaminases increased [Recovering/Resolving]
  - Portal hypertension [Unknown]
  - Varices oesophageal [Unknown]
